FAERS Safety Report 6170922-2 (Version None)
Quarter: 2009Q2

REPORT INFORMATION
  Report Type: 
  Country: None (occurrence: None)
  Receive Date: 20090429
  Receipt Date: 20090420
  Transmission Date: 20091009
  Serious: Yes (Death)
  Sender: FDA-Public Use
  Company Number: GB-RANBAXY-2009RR-23636

PATIENT

DRUGS (5)
  1. AMOXICILLIN [Suspect]
     Route: 065
  2. CEFUROXIME [Suspect]
     Route: 065
  3. CIPROFLOXACIN [Suspect]
     Route: 065
  4. LACTULOSE [Suspect]
     Route: 065
  5. SENNA [Suspect]
     Route: 065

REACTIONS (2)
  - CLOSTRIDIAL INFECTION [None]
  - DIARRHOEA [None]
